FAERS Safety Report 25406349 (Version 1)
Quarter: 2025Q2

REPORT INFORMATION
  Report Type: Spontaneous
  Country: BR (occurrence: BR)
  Receive Date: 20250606
  Receipt Date: 20250606
  Transmission Date: 20250716
  Serious: Yes (Hospitalization, Other)
  Sender: BIOGEN
  Company Number: BR-BIOGEN-2025BI01313003

PATIENT
  Age: 65 Year
  Sex: Male
  Weight: 72 kg

DRUGS (5)
  1. AVONEX [Suspect]
     Active Substance: INTERFERON BETA-1A
     Indication: Multiple sclerosis
     Route: 050
  2. AVONEX [Suspect]
     Active Substance: INTERFERON BETA-1A
  3. AVONEX [Suspect]
     Active Substance: INTERFERON BETA-1A
  4. AVONEX [Suspect]
     Active Substance: INTERFERON BETA-1A
  5. FINGOLIMOD [Suspect]
     Active Substance: FINGOLIMOD
     Indication: Product used for unknown indication
     Route: 050

REACTIONS (11)
  - Multiple sclerosis relapse [Unknown]
  - Seizure [Recovered/Resolved]
  - White blood cell count decreased [Not Recovered/Not Resolved]
  - Blood pressure abnormal [Unknown]
  - Herpes zoster [Recovered/Resolved]
  - Body height decreased [Unknown]
  - Multiple sclerosis [Unknown]
  - CSF immunoglobulin increased [Unknown]
  - Off label use [Unknown]
  - Immunosuppression [Not Recovered/Not Resolved]
  - Malaise [Recovered/Resolved]

NARRATIVE: CASE EVENT DATE: 20250301
